FAERS Safety Report 9051585 (Version 1)
Quarter: 2013Q1

REPORT INFORMATION
  Report Type: Spontaneous
  Country: US (occurrence: US)
  Receive Date: 20130207
  Receipt Date: 20130207
  Transmission Date: 20140127
  Serious: No
  Sender: FDA-Public Use
  Company Number: US-BIOGENIDEC-2013BI009156

PATIENT
  Age: 44 Year
  Sex: Female

DRUGS (2)
  1. TYSABRI [Suspect]
     Indication: MULTIPLE SCLEROSIS
     Route: 042
     Dates: start: 20130121
  2. AVONEX [Concomitant]
     Indication: MULTIPLE SCLEROSIS
     Route: 030
     Dates: start: 20080328

REACTIONS (7)
  - Migraine [Recovered/Resolved]
  - Ear pain [Not Recovered/Not Resolved]
  - Epistaxis [Recovered/Resolved]
  - Feeling cold [Recovered/Resolved]
  - Somnolence [Recovered/Resolved]
  - Rhinitis [Unknown]
  - Infusion related reaction [Recovered/Resolved]
